FAERS Safety Report 11583471 (Version 1)
Quarter: 2015Q3

REPORT INFORMATION
  Report Type: Spontaneous
  Country: None (occurrence: None)
  Receive Date: 20150930
  Receipt Date: 20150930
  Transmission Date: 20151125
  Serious: Yes (Hospitalization)
  Sender: FDA-Public Use
  Company Number: None

PATIENT
  Age: 72 Year
  Sex: Male

DRUGS (28)
  1. FINASTERIDE. [Concomitant]
     Active Substance: FINASTERIDE
  2. LEVOTHYROXINE. [Concomitant]
     Active Substance: LEVOTHYROXINE
  3. METOPROLOL [Concomitant]
     Active Substance: METOPROLOL
  4. MULTIVITAMIN [Concomitant]
     Active Substance: VITAMINS
  5. DULOXETINE. [Concomitant]
     Active Substance: DULOXETINE
  6. ONDANSETRON  HCL [Concomitant]
     Active Substance: ONDANSETRON HYDROCHLORIDE
  7. SUCRALFATE SUSPENSION [Concomitant]
  8. GAVISCON [Concomitant]
     Active Substance: ALUMINUM HYDROXIDE\MAGNESIUM CARBONATE
  9. MILK OF MAGNESIA [Concomitant]
     Active Substance: MAGNESIUM HYDROXIDE
  10. OXYBUTYNIN [Concomitant]
     Active Substance: OXYBUTYNIN
  11. TAMSULOSIN [Concomitant]
     Active Substance: TAMSULOSIN
  12. CLOZAPINE 100 MG TEVA [Suspect]
     Active Substance: CLOZAPINE
     Indication: PSYCHOTIC DISORDER
     Dosage: QH
     Route: 048
  13. LIP-ATORVASTATIN [Concomitant]
  14. LEVOCARNITINE. [Concomitant]
     Active Substance: LEVOCARNITINE
  15. POLYETHYLENE GLYCOL [Concomitant]
     Active Substance: POLYETHYLENE GLYCOLS
  16. ZOLPIDEM [Concomitant]
     Active Substance: ZOLPIDEM\ZOLPIDEM TARTRATE
  17. ALUMINA [Concomitant]
  18. D VITAMIN [Concomitant]
  19. LORATADINE. [Concomitant]
     Active Substance: LORATADINE
  20. MIRTAZAPINE. [Concomitant]
     Active Substance: MIRTAZAPINE
  21. MIRALAX [Concomitant]
     Active Substance: POLYETHYLENE GLYCOL 3350
  22. FERROUS SULFATE [Concomitant]
     Active Substance: FERROUS SULFATE\FERROUS SULFATE, DRIED
  23. LORAZEPAM. [Concomitant]
     Active Substance: LORAZEPAM
  24. PANTOPRAZOLE [Concomitant]
     Active Substance: PANTOPRAZOLE SODIUM
  25. ALBUTEROL. [Concomitant]
     Active Substance: ALBUTEROL
  26. MAG.CARB ALGINIC [Concomitant]
  27. VITAMIN B1 [Concomitant]
     Active Substance: THIAMINE HYDROCHLORIDE
  28. QUETIAPINE [Concomitant]
     Active Substance: QUETIAPINE

REACTIONS (2)
  - Hypoxia [None]
  - Respiratory distress [None]

NARRATIVE: CASE EVENT DATE: 20150818
